FAERS Safety Report 9686967 (Version 1)
Quarter: 2013Q4

REPORT INFORMATION
  Report Type: Spontaneous
  Country: US (occurrence: US)
  Receive Date: 20131113
  Receipt Date: 20131113
  Transmission Date: 20140711
  Serious: No
  Sender: FDA-Public Use
  Company Number: US-PFIZER INC-2013318834

PATIENT
  Sex: 0

DRUGS (2)
  1. GELFOAM [Suspect]
     Indication: BACK DISORDER
     Dosage: UNK
     Dates: start: 20131104
  2. THROMBIN-JMI [Suspect]
     Indication: BACK DISORDER
     Dosage: UNK
     Dates: start: 20131104

REACTIONS (1)
  - Haematoma [Unknown]
